FAERS Safety Report 7349282-7 (Version None)
Quarter: 2011Q1

REPORT INFORMATION
  Report Type: 
  Country: None (occurrence: None)
  Receive Date: 20110314
  Receipt Date: 20110228
  Transmission Date: 20110831
  Serious: Yes (Hospitalization)
  Sender: FDA-Public Use
  Company Number: IT-MYLANLABS-2011S1003947

PATIENT
  Age: 33 Year
  Sex: Male

DRUGS (4)
  1. ROCEPHIN [Concomitant]
     Indication: TONSILLITIS
     Dates: start: 20110221, end: 20110224
  2. BROMAZEPAM [Suspect]
     Indication: OVERDOSE
     Route: 048
     Dates: start: 20110223, end: 20110223
  3. KLACID [Concomitant]
     Indication: TONSILLITIS
     Dates: start: 20110221, end: 20110224
  4. ALPRAZOLAM [Suspect]
     Indication: OVERDOSE
     Route: 048
     Dates: start: 20110224, end: 20110224

REACTIONS (3)
  - BRADYKINESIA [None]
  - SOMNOLENCE [None]
  - OVERDOSE [None]
